FAERS Safety Report 7828924 (Version 3)
Quarter: 2022Q3

REPORT INFORMATION
  Report Type: Spontaneous
  Country: CA (occurrence: CA)
  Receive Date: 20110225
  Receipt Date: 20220804
  Transmission Date: 20221027
  Serious: Yes (Life-Threatening, Hospitalization, Other)
  Sender: FDA-Public Use
  Company Number: CA-BAYER-2010-002801

PATIENT
  Age: 22 Year
  Sex: Female

DRUGS (3)
  1. YAZ [Suspect]
     Active Substance: DROSPIRENONE\ETHINYL ESTRADIOL
     Dosage: UNK
     Dates: start: 20090801, end: 20100101
  2. FRAGMIN [Concomitant]
     Active Substance: DALTEPARIN SODIUM
  3. COUMADIN [Concomitant]
     Active Substance: WARFARIN SODIUM

REACTIONS (25)
  - Pulmonary embolism [None]
  - Cholelithiasis [Recovered/Resolved]
  - Deep vein thrombosis [None]
  - General physical health deterioration [None]
  - Cholecystectomy [None]
  - Abdominal pain [None]
  - Vomiting [None]
  - Chest pain [None]
  - Nausea [None]
  - Dyspnoea [None]
  - Back pain [None]
  - Pain [None]
  - Pruritus [None]
  - Arthralgia [None]
  - Burning sensation [None]
  - Phlebitis deep [None]
  - Pain in extremity [None]
  - Obesity [None]
  - Dyspnoea [None]
  - Musculoskeletal chest pain [None]
  - Cough [None]
  - Pleuritic pain [None]
  - Sinus arrhythmia [None]
  - Food allergy [None]
  - Drug hypersensitivity [None]

NARRATIVE: CASE EVENT DATE: 20091001
